FAERS Safety Report 4379305-9 (Version None)
Quarter: 2004Q2

REPORT INFORMATION
  Report Type: 
  Country: None (occurrence: None)
  Receive Date: 20040614
  Receipt Date: 20040601
  Transmission Date: 20050107
  Serious: Yes (Hospitalization)
  Sender: FDA-Public Use
  Company Number: S04-USA-03039-02

PATIENT
  Sex: Male

DRUGS (4)
  1. CELEXA [Suspect]
     Indication: ANXIETY
     Dosage: 20 MG QD TRANSPLACENTAL
     Route: 064
     Dates: start: 20030701, end: 20040501
  2. CELEXA [Suspect]
     Indication: DEPRESSION
     Dosage: 20 MG QD TRANSPLACENTAL
     Route: 064
     Dates: start: 20030701, end: 20040501
  3. CELEXA [Suspect]
     Indication: ANXIETY
     Dosage: 20 MG QD PO
     Route: 064
     Dates: start: 20040501
  4. CELEXA [Suspect]
     Indication: DEPRESSION
     Dosage: 20 MG QD PO
     Route: 064
     Dates: start: 20040501

REACTIONS (4)
  - CLONUS [None]
  - DRUG EXPOSURE DURING PREGNANCY [None]
  - FEVER NEONATAL [None]
  - NEONATAL DISORDER [None]
